FAERS Safety Report 20028803 (Version 5)
Quarter: 2022Q1

REPORT INFORMATION
  Report Type: Other
  Country: DE (occurrence: None)
  Receive Date: 20211103
  Receipt Date: 20220323
  Transmission Date: 20220423
  Serious: Yes (Hospitalization)
  Sender: FDA-Public Use
  Company Number: DE-ROCHE-2941351

PATIENT
  Age: 37 Year
  Sex: Female
  Weight: 70 kg

DRUGS (11)
  1. OCRELIZUMAB [Suspect]
     Active Substance: OCRELIZUMAB
     Indication: Relapsing-remitting multiple sclerosis
     Dosage: SECOND DOSE WAS ON 29/APR/2020?START DATE IF LAST DOSE PRIOR TO THE LMP (LAST MENSTRUAL PERIOD): 18/
     Route: 042
     Dates: start: 20200417
  2. OCRELIZUMAB [Suspect]
     Active Substance: OCRELIZUMAB
     Route: 042
     Dates: start: 20201118, end: 20201118
  3. CORTISONE [Concomitant]
     Active Substance: CORTISONE
     Dates: start: 20201118, end: 20201118
  4. ACETAMINOPHEN [Concomitant]
     Active Substance: ACETAMINOPHEN
     Dates: start: 20201118, end: 20201118
  5. DIMETHINDENE [Concomitant]
     Active Substance: DIMETHINDENE
     Dates: start: 20201118, end: 20201118
  6. NARATRIPTAN [Concomitant]
     Active Substance: NARATRIPTAN HYDROCHLORIDE
     Dates: start: 2019, end: 20210102
  7. FOLIC ACID [Concomitant]
     Active Substance: FOLIC ACID
     Dates: start: 20200512, end: 20210228
  8. FEMIBION [Concomitant]
     Dates: start: 20210301, end: 20210314
  9. MIVOLIS HAIR VITAL COMPLEX [Concomitant]
     Dates: start: 20210315
  10. FERROUS SULFATE [Concomitant]
     Active Substance: FERROUS SULFATE
     Dates: start: 20210630
  11. COMIRNATY [Concomitant]
     Active Substance: TOZINAMERAN
     Dates: start: 20210611

REACTIONS (2)
  - HELLP syndrome [Recovered/Resolved]
  - Maternal exposure before pregnancy [Unknown]

NARRATIVE: CASE EVENT DATE: 20210912
